FAERS Safety Report 13113083 (Version 1)
Quarter: 2017Q1

REPORT INFORMATION
  Report Type: Spontaneous
  Country: JP (occurrence: JP)
  Receive Date: 20170113
  Receipt Date: 20170113
  Transmission Date: 20170428
  Serious: Yes (Other)
  Sender: FDA-Public Use
  Company Number: PHJP2016JP030110

PATIENT
  Age: 81 Year
  Sex: Female

DRUGS (1)
  1. EXELON PATCH [Suspect]
     Active Substance: RIVASTIGMINE
     Indication: DEMENTIA ALZHEIMER^S TYPE
     Dosage: PATCH2.5(CM2), QD
     Route: 062
     Dates: start: 20160531, end: 201607

REACTIONS (6)
  - Erythema [Unknown]
  - Dermatitis allergic [Recovering/Resolving]
  - Application site vesicles [Unknown]
  - Application site pruritus [Recovering/Resolving]
  - Application site scab [Unknown]
  - Wrong technique in product usage process [Unknown]

NARRATIVE: CASE EVENT DATE: 20160621
